FAERS Safety Report 6420301-5 (Version None)
Quarter: 2009Q4

REPORT INFORMATION
  Report Type: 
  Country: None (occurrence: None)
  Receive Date: 20091029
  Receipt Date: 20091020
  Transmission Date: 20100525
  Serious: Yes (Other)
  Sender: FDA-Public Use
  Company Number: US-PFIZER INC-2009276411

PATIENT
  Sex: Male
  Weight: 73.016 kg

DRUGS (7)
  1. NICOTINE [Suspect]
  2. NICOTINE [Suspect]
     Indication: PERIPHERAL ARTERIAL OCCLUSIVE DISEASE
  3. NICOTINE [Suspect]
     Indication: CHRONIC OBSTRUCTIVE PULMONARY DISEASE
  4. NICOTINE [Suspect]
     Indication: STENT PLACEMENT
  5. WELLBUTRIN [Suspect]
     Indication: NICOTINE DEPENDENCE
     Route: 048
  6. WELLBUTRIN [Suspect]
     Indication: DYSLIPIDAEMIA
  7. WELLBUTRIN [Suspect]
     Indication: HYPERTENSION

REACTIONS (6)
  - AGITATION [None]
  - ANXIETY [None]
  - BLOOD TRIGLYCERIDES INCREASED [None]
  - DRUG INEFFECTIVE [None]
  - HIGH DENSITY LIPOPROTEIN DECREASED [None]
  - RASH [None]
